FAERS Safety Report 4906401-7 (Version None)
Quarter: 2006Q1

REPORT INFORMATION
  Report Type: 
  Country: None (occurrence: None)
  Receive Date: 20060209
  Receipt Date: 20060206
  Transmission Date: 20060701
  Serious: Yes (Other)
  Sender: FDA-Public Use
  Company Number: US-GLAXOSMITHKLINE-A0592405A

PATIENT
  Age: 85 Year
  Sex: Female

DRUGS (5)
  1. ECOTRIN REGULAR STRENGTH TABLETS [Suspect]
     Indication: COAGULOPATHY
     Dosage: 1TAB PER DAY
     Route: 048
  2. FLEET [Concomitant]
  3. DIOVAN [Concomitant]
  4. METOPROLOL [Concomitant]
  5. DILTIAZEM HCL [Concomitant]

REACTIONS (8)
  - ABNORMAL FAECES [None]
  - ASTHENIA [None]
  - DEHYDRATION [None]
  - DIARRHOEA [None]
  - FLATULENCE [None]
  - FREQUENT BOWEL MOVEMENTS [None]
  - GASTROENTERITIS [None]
  - SALIVARY HYPERSECRETION [None]
